FAERS Safety Report 16935883 (Version 1)
Quarter: 2019Q4

REPORT INFORMATION
  Report Type: Spontaneous
  Country: US (occurrence: US)
  Receive Date: 20191018
  Receipt Date: 20191018
  Transmission Date: 20200122
  Serious: Yes (Life-Threatening, Hospitalization)
  Sender: FDA-Public Use
  Company Number: None

PATIENT
  Age: 76 Year
  Sex: Male
  Weight: 92 kg

DRUGS (1)
  1. GAMUNEX-C [Suspect]
     Active Substance: HUMAN IMMUNOGLOBULIN G
     Indication: CHRONIC INFLAMMATORY DEMYELINATING POLYRADICULONEUROPATHY
     Dosage: ?          OTHER FREQUENCY:90 GM EVERY 3 WKS;?
     Route: 042
     Dates: start: 20190523, end: 20191018

REACTIONS (4)
  - Eyelid ptosis [None]
  - Chest discomfort [None]
  - Cerebrovascular accident [None]
  - Speech disorder [None]

NARRATIVE: CASE EVENT DATE: 20191004
